FAERS Safety Report 5521268-4 (Version None)
Quarter: 2007Q4

REPORT INFORMATION
  Report Type: 
  Country: None (occurrence: None)
  Receive Date: 20071119
  Receipt Date: 20071115
  Transmission Date: 20080405
  Serious: Yes (Other)
  Sender: FDA-Public Use
  Company Number: IT-ROXANE LABORATORIES, INC-2007-DE-06768GD

PATIENT

DRUGS (5)
  1. ASPIRIN [Suspect]
     Indication: ANTICOAGULANT THERAPY
  2. PREDNISONE TAB [Suspect]
     Indication: MULTIPLE MYELOMA
     Dosage: 2 MG/KG ON DAYS 1 TO 4 FOR NINE MONTHLY CYCLES
  3. MELPHALAN [Suspect]
     Indication: MULTIPLE MYELOMA
     Dosage: 0.18 MG/KG ON DAYS 1 TO 4, FOR NINE MONTHLY CYCLES
     Route: 048
  4. REVLIMID [Suspect]
     Indication: MULTIPLE MYELOMA
     Dosage: 10 MG ON DAYS 1 TO 21, FOR NINE MONTHLY CYCLES
  5. CIPROFLOXACIN [Concomitant]
     Indication: ANTIBIOTIC PROPHYLAXIS

REACTIONS (2)
  - DEEP VEIN THROMBOSIS [None]
  - REBOUND EFFECT [None]
